FAERS Safety Report 7968101-9 (Version None)
Quarter: 2011Q4

REPORT INFORMATION
  Report Type: 
  Country: None (occurrence: None)
  Receive Date: 20111121
  Receipt Date: 20110919
  Transmission Date: 20120403
  Serious: No
  Sender: FDA-Public Use
  Company Number: 1000024004

PATIENT
  Age: 56 Year
  Sex: Female

DRUGS (4)
  1. VICODIN [Concomitant]
  2. ATIVAN [Concomitant]
  3. SIMVASTATIN [Concomitant]
  4. VIIBRYD [Suspect]
     Indication: DEPRESSION
     Dosage: 10 MG (10 MG, 1 IN 1 D), ORAL
     Route: 048
     Dates: start: 20110901, end: 20110908

REACTIONS (1)
  - INSOMNIA [None]
